FAERS Safety Report 12813668 (Version 1)
Quarter: 2016Q4

REPORT INFORMATION
  Report Type: Spontaneous
  Country: US (occurrence: US)
  Receive Date: 20161005
  Receipt Date: 20161005
  Transmission Date: 20170207
  Serious: Yes (Other)
  Sender: FDA-Public Use
  Company Number: US-SA-2016SA106677

PATIENT
  Age: 55 Year
  Sex: Male

DRUGS (6)
  1. ENBREL [Concomitant]
     Active Substance: ETANERCEPT
     Route: 065
  2. ORUDIS [Suspect]
     Active Substance: KETOPROFEN
     Route: 065
  3. COSENTYX [Suspect]
     Active Substance: SECUKINUMAB
     Route: 065
  4. HUMIRA [Suspect]
     Active Substance: ADALIMUMAB
     Route: 065
  5. ARAVA [Suspect]
     Active Substance: LEFLUNOMIDE
     Route: 065
  6. REMICADE [Concomitant]
     Active Substance: INFLIXIMAB
     Route: 065

REACTIONS (8)
  - Ankylosing spondylitis [Unknown]
  - Weight decreased [Unknown]
  - Mouth ulceration [Unknown]
  - Stress [Unknown]
  - Inflammation [Unknown]
  - Malaise [Unknown]
  - Vision blurred [Unknown]
  - Laryngitis [Unknown]
